FAERS Safety Report 8528658 (Version 9)
Quarter: 2013Q1

REPORT INFORMATION
  Report Type: Spontaneous
  Country: US (occurrence: US)
  Receive Date: 20120424
  Receipt Date: 20130307
  Transmission Date: 20140127
  Serious: Yes (Hospitalization, Other)
  Sender: FDA-Public Use
  Company Number: US-009507513-1204USA03125

PATIENT
  Sex: Female

DRUGS (10)
  1. FOSAMAX [Suspect]
     Indication: OSTEOPOROSIS
     Dosage: 5 MG, UNK
     Route: 048
     Dates: start: 200006, end: 200206
  2. FOSAMAX [Suspect]
     Indication: OSTEOPENIA
     Dosage: 10 UNK, UNK
     Route: 048
  3. FOSAMAX [Suspect]
     Dosage: 70 MG, QW
     Route: 048
     Dates: start: 2001, end: 20110409
  4. FOSAMAX [Suspect]
     Indication: OSTEOPOROSIS
     Dosage: UNK
     Route: 048
     Dates: start: 2000, end: 2011
  5. FOSAMAX [Suspect]
     Indication: OSTEOPENIA
     Dosage: 70 MG, QD
     Route: 048
     Dates: start: 2001, end: 20110409
  6. PREDNISONE [Concomitant]
     Indication: RHEUMATOID ARTHRITIS
     Dosage: 5MG QD-10MG BID
  7. ATENOLOL [Concomitant]
     Indication: HYPERTENSION
     Dosage: 50 MG, QD
  8. ARAVA [Concomitant]
     Dosage: 10 MG, QD
  9. PREMARIN [Concomitant]
     Dosage: 0.625 MG, QD
  10. HORMONES (UNSPECIFIED) [Concomitant]

REACTIONS (40)
  - Open reduction of fracture [Unknown]
  - Laminaplasty [Unknown]
  - Joint arthroplasty [Unknown]
  - Rheumatoid arthritis [Unknown]
  - Spinal operation [Unknown]
  - Neck surgery [Unknown]
  - Transfusion [Unknown]
  - White blood cell count increased [Recovered/Resolved]
  - Haematocrit decreased [Recovered/Resolved]
  - Haemoglobin decreased [Recovered/Resolved]
  - Hearing impaired [Unknown]
  - Surgery [Unknown]
  - Gangrene [Unknown]
  - Toe amputation [Unknown]
  - Pyrexia [Unknown]
  - Femur fracture [Unknown]
  - Cyst removal [Unknown]
  - Cyst [Unknown]
  - Vaginal infection [Unknown]
  - Vaginal lesion [Unknown]
  - Pneumonia [Unknown]
  - Radiculopathy [Unknown]
  - Monoclonal gammopathy [Unknown]
  - Cervical spinal stenosis [Unknown]
  - Spinal osteoarthritis [Unknown]
  - Breast calcifications [Unknown]
  - Groin abscess [Unknown]
  - Anaemia of chronic disease [Not Recovered/Not Resolved]
  - Foot operation [Unknown]
  - Hot flush [Unknown]
  - Surgery [Unknown]
  - Stress fracture [Unknown]
  - Blood cholesterol increased [Unknown]
  - Rheumatoid arthritis [Unknown]
  - Osteomyelitis [Unknown]
  - Exposed bone in jaw [Unknown]
  - Treatment failure [Unknown]
  - Osteomyelitis acute [Unknown]
  - Skin ulcer [Unknown]
  - Overdose [Unknown]
